FAERS Safety Report 8380505-1 (Version None)
Quarter: 2012Q2

REPORT INFORMATION
  Report Type: 
  Country: None (occurrence: None)
  Receive Date: 20120523
  Receipt Date: 20120517
  Transmission Date: 20120825
  Serious: Yes (Other)
  Sender: FDA-Public Use
  Company Number: BH-GLAXOSMITHKLINE-B0802811A

PATIENT
  Age: 57 Year
  Sex: Male

DRUGS (1)
  1. VOTRIENT [Suspect]
     Indication: METASTATIC RENAL CELL CARCINOMA
     Dosage: 800MG PER DAY
     Route: 065
     Dates: start: 20120409

REACTIONS (5)
  - PAIN OF SKIN [None]
  - SKIN EXFOLIATION [None]
  - PAIN [None]
  - SKIN TOXICITY [None]
  - ERYTHEMA [None]
